FAERS Safety Report 8371851-6 (Version None)
Quarter: 2012Q2

REPORT INFORMATION
  Report Type: 
  Country: None (occurrence: None)
  Receive Date: 20120518
  Receipt Date: 20120510
  Transmission Date: 20120825
  Serious: Yes (Other)
  Sender: FDA-Public Use
  Company Number: AR-ROCHE-1064560

PATIENT
  Sex: Male

DRUGS (1)
  1. XOLAIR [Suspect]
     Indication: ASTHMA
     Dosage: 4 AMPOULES PER MONTH
     Dates: start: 20110101, end: 20111201

REACTIONS (3)
  - NO THERAPEUTIC RESPONSE [None]
  - ASTHMATIC CRISIS [None]
  - PRODUCT QUALITY ISSUE [None]
